FAERS Safety Report 12310363 (Version 1)
Quarter: 2016Q2

REPORT INFORMATION
  Report Type: Spontaneous
  Country: US (occurrence: None)
  Receive Date: 20160426
  Receipt Date: 20160426
  Transmission Date: 20160815
  Serious: Yes (Disabling)
  Sender: FDA-Public Use
  Company Number: None

PATIENT
  Age: 44 Year
  Sex: Female
  Weight: 65.77 kg

DRUGS (3)
  1. IMITREX [Concomitant]
     Active Substance: SUMATRIPTAN SUCCINATE
  2. ESTRADIOL. [Concomitant]
     Active Substance: ESTRADIOL
  3. METRONIDAZOLE 250MG TABLET, 250MG ACTAVIS PHARMA [Suspect]
     Active Substance: METRONIDAZOLE
     Indication: INFECTION
     Route: 048
     Dates: start: 20160406, end: 20160410

REACTIONS (3)
  - Neuralgia [None]
  - Muscle twitching [None]
  - Neuropathy peripheral [None]

NARRATIVE: CASE EVENT DATE: 20160410
